FAERS Safety Report 22259608 (Version 1)
Quarter: 2023Q2

REPORT INFORMATION
  Report Type: Spontaneous
  Country: US (occurrence: None)
  Receive Date: 20230426
  Receipt Date: 20230426
  Transmission Date: 20230721
  Serious: Yes (Disabling)
  Sender: FDA-Public Use
  Company Number: None

PATIENT
  Age: 69 Year
  Sex: Female
  Weight: 87.3 kg

DRUGS (7)
  1. PREDNISONE [Suspect]
     Active Substance: PREDNISONE
     Indication: Pneumonia
     Dosage: OTHER FREQUENCY : 4/DAY,2/DAY,1DAY @;?
     Route: 048
     Dates: start: 20230315, end: 20230330
  2. AMOXICILLIN [Suspect]
     Active Substance: AMOXICILLIN
  3. O2 CONCENTRATO [Concomitant]
  4. PREDNISONE [Concomitant]
     Active Substance: PREDNISONE
  5. DOXYCYCLINE HYCLATE [Concomitant]
     Active Substance: DOXYCYCLINE HYCLATE
  6. CLOTRIMAZOLE/BETAMETH CREAM [Concomitant]
  7. ADVIL [Concomitant]
     Active Substance: IBUPROFEN

REACTIONS (7)
  - Skin weeping [None]
  - Fungal skin infection [None]
  - Pain [None]
  - Skin erosion [None]
  - Skin haemorrhage [None]
  - Skin exfoliation [None]
  - Loss of personal independence in daily activities [None]

NARRATIVE: CASE EVENT DATE: 20230403
